FAERS Safety Report 21337301 (Version 5)
Quarter: 2022Q4

REPORT INFORMATION
  Report Type: Report from Study
  Country: KR (occurrence: KR)
  Receive Date: 20220915
  Receipt Date: 20221226
  Transmission Date: 20230113
  Serious: Yes (Death, Life-Threatening, Hospitalization, Other)
  Sender: FDA-Public Use
  Company Number: KR-BRISTOL-MYERS SQUIBB COMPANY-2022-106260

PATIENT
  Age: 84 Year
  Sex: Female
  Weight: 40 kg

DRUGS (10)
  1. POMALIDOMIDE [Suspect]
     Active Substance: POMALIDOMIDE
     Indication: Plasma cell myeloma refractory
     Route: 048
     Dates: start: 20220719, end: 20220905
  2. DEXAMETHASONE [Suspect]
     Active Substance: DEXAMETHASONE
     Indication: Plasma cell myeloma refractory
     Route: 048
     Dates: start: 20220719, end: 20220906
  3. DARATUMUMAB [Suspect]
     Active Substance: DARATUMUMAB
     Indication: Plasma cell myeloma refractory
     Route: 058
     Dates: start: 20220719, end: 20220830
  4. ULTRACET [Concomitant]
     Active Substance: ACETAMINOPHEN\TRAMADOL HYDROCHLORIDE
     Indication: Back pain
     Dosage: AS REQUIRED
     Route: 048
     Dates: start: 20210621
  5. ASPIRIN [Concomitant]
     Active Substance: ASPIRIN
     Indication: Thrombosis prophylaxis
     Dosage: 1 IN 1 D
     Route: 048
     Dates: start: 20220719
  6. MEGACE F [Concomitant]
     Indication: Prophylaxis
     Dosage: AS REQUIRED
     Route: 048
     Dates: start: 20220802
  7. LENOGRASTIM [Concomitant]
     Active Substance: LENOGRASTIM
     Indication: Neutrophil count decreased
     Dosage: ONCE
     Route: 058
     Dates: start: 20220906, end: 20220906
  8. LENOGRASTIM [Concomitant]
     Active Substance: LENOGRASTIM
     Dosage: ONCE
     Route: 058
     Dates: start: 20220907, end: 20220907
  9. LENOGRASTIM [Concomitant]
     Active Substance: LENOGRASTIM
     Dosage: ONCE
     Route: 058
     Dates: start: 20220908, end: 20220908
  10. BEAROBAN [Concomitant]
     Indication: Prophylaxis
     Dosage: AS REQUIRED
     Route: 062
     Dates: start: 20220816

REACTIONS (3)
  - Pneumonia [Fatal]
  - Neutropenic sepsis [Fatal]
  - Septic shock [Fatal]

NARRATIVE: CASE EVENT DATE: 20220907
